FAERS Safety Report 6526271-3 (Version None)
Quarter: 2009Q4

REPORT INFORMATION
  Report Type: 
  Country: None (occurrence: None)
  Receive Date: 20091228
  Receipt Date: 20091216
  Transmission Date: 20100525
  Serious: Yes (Hospitalization)
  Sender: FDA-Public Use
  Company Number: 234956J09USA

PATIENT
  Age: 51 Year
  Sex: Male

DRUGS (3)
  1. REBIF [Suspect]
     Indication: MULTIPLE SCLEROSIS
     Dosage: 44 MCG, 3 IN 1 WEEKS, SUBCUTANEOUS
     Route: 058
     Dates: start: 20090413
  2. CYMBALTA [Concomitant]
  3. MIRAPEX [Concomitant]

REACTIONS (2)
  - FRACTURE NONUNION [None]
  - NERVE COMPRESSION [None]
